FAERS Safety Report 4821834-5 (Version None)
Quarter: 2005Q4

REPORT INFORMATION
  Report Type: 
  Country: None (occurrence: None)
  Receive Date: 20051107
  Receipt Date: 20051031
  Transmission Date: 20060501
  Serious: Yes (Life-Threatening, Hospitalization)
  Sender: FDA-Public Use
  Company Number: PHFR2005GB03568

PATIENT
  Age: 67 Year
  Sex: Female
  Weight: 31 kg

DRUGS (6)
  1. CYCLOSPORINE [Suspect]
     Indication: PSORIATIC ARTHROPATHY
     Dosage: 50 MG, BID
     Route: 048
     Dates: start: 20050819, end: 20050825
  2. METHOTREXATE [Concomitant]
     Indication: PSORIATIC ARTHROPATHY
     Dosage: 7.5 MG, QW
     Route: 048
     Dates: start: 20050801, end: 20050901
  3. FOLIC ACID [Concomitant]
     Indication: PSORIATIC ARTHROPATHY
     Dosage: 5 MG, QW
     Route: 048
     Dates: start: 20050801
  4. DICLOFENAC [Concomitant]
     Dosage: 75 MG, BID
     Route: 048
     Dates: start: 20050101, end: 20050501
  5. FERROUS SULFATE TAB [Concomitant]
     Indication: ANAEMIA
     Dosage: 200 MG, TID
     Route: 048
     Dates: start: 20050501, end: 20050801
  6. OMEPRAZOLE [Concomitant]
     Dosage: 40 MG/DAY
     Route: 048
     Dates: start: 20050801

REACTIONS (4)
  - CEREBRAL ISCHAEMIA [None]
  - COMPUTERISED TOMOGRAM ABNORMAL [None]
  - CONVULSION [None]
  - PYREXIA [None]
